FAERS Safety Report 11645903 (Version 2)
Quarter: 2015Q4

REPORT INFORMATION
  Report Type: Spontaneous
  Country: US (occurrence: US)
  Receive Date: 20151020
  Receipt Date: 20151119
  Transmission Date: 20160304
  Serious: Yes (Hospitalization, Other)
  Sender: FDA-Public Use
  Company Number: US-PFIZER INC-2015347847

PATIENT
  Age: 35 Year
  Sex: Female
  Weight: 96 kg

DRUGS (4)
  1. LYRICA [Suspect]
     Active Substance: PREGABALIN
     Indication: BACK PAIN
     Dosage: 50MG CAPSULE, 1 IN MORNING AND 1 AFTERNOON AND 100MG AT NIGHT
     Route: 048
     Dates: start: 20150929
  2. LYRICA [Suspect]
     Active Substance: PREGABALIN
     Indication: ABDOMINAL PAIN UPPER
  3. LYRICA [Suspect]
     Active Substance: PREGABALIN
     Indication: PAIN IN EXTREMITY
  4. HYDROCODONE [Concomitant]
     Active Substance: HYDROCODONE
     Indication: PAIN
     Dosage: 10 MG, 3X/DAY

REACTIONS (9)
  - Drug hypersensitivity [Recovered/Resolved]
  - Sleep apnoea syndrome [Unknown]
  - Nervous system disorder [Unknown]
  - Chest pain [Recovering/Resolving]
  - Migraine [Unknown]
  - Dyspnoea [Recovering/Resolving]
  - Condition aggravated [Unknown]
  - Throat tightness [Recovered/Resolved]
  - Throat lesion [Recovered/Resolved]

NARRATIVE: CASE EVENT DATE: 2015
